FAERS Safety Report 6032199-8 (Version None)
Quarter: 2009Q1

REPORT INFORMATION
  Report Type: 
  Country: None (occurrence: None)
  Receive Date: 20090108
  Receipt Date: 20081230
  Transmission Date: 20090719
  Serious: Yes (Other)
  Sender: FDA-Public Use
  Company Number: DE-ROXANE LABORATORIES, INC.-2008-RO-00496RO

PATIENT
  Age: 23 Year
  Sex: Female

DRUGS (4)
  1. FLUCONAZOLE [Suspect]
     Indication: VULVOVAGINAL CANDIDIASIS
  2. FLUCONAZOLE [Suspect]
  3. ORAL CONTRACEPTIVES [Suspect]
  4. ACYCLOVIR [Concomitant]
     Indication: BLISTER

REACTIONS (1)
  - DRUG ERUPTION [None]
